FAERS Safety Report 5190035-6 (Version None)
Quarter: 2006Q4

REPORT INFORMATION
  Report Type: 
  Country: None (occurrence: None)
  Receive Date: 20061215
  Receipt Date: 20061204
  Transmission Date: 20070319
  Serious: Yes (Life-Threatening)
  Sender: FDA-Public Use
  Company Number: GB-2006-023284

PATIENT
  Sex: Male

DRUGS (13)
  1. ULTRAVIST 300 [Suspect]
     Indication: ACUTE MYOCARDIAL INFARCTION
     Dosage: INTRAVENOUS
     Route: 042
     Dates: start: 20060616, end: 20060616
  2. REOPRO [Suspect]
     Indication: ACUTE MYOCARDIAL INFARCTION
     Dosage: INTRAVENOUS
     Route: 042
     Dates: start: 20060616, end: 20060616
  3. ASPIRIN [Concomitant]
  4. ATENOLOL [Concomitant]
  5. ATORVASTATIN CALCIUM [Concomitant]
  6. BENDROFLUAZIDE                      (BENDROFLUMETHIAZIDE) [Concomitant]
  7. CLOPIDOGREL [Concomitant]
  8. GLICLAZIDE                      (GLICLAZIDE) [Concomitant]
  9. GTN-S [Concomitant]
  10. LIGNOCAINE [Concomitant]
  11. METFORMIN HCL [Concomitant]
  12. SIMVASTATIN [Concomitant]
  13. SUCCINYLATED GELATIN [Concomitant]

REACTIONS (5)
  - DYSPNOEA [None]
  - ERYTHEMA [None]
  - HYPOTENSION [None]
  - OEDEMA [None]
  - SWELLING [None]
